FAERS Safety Report 5963370-9 (Version None)
Quarter: 2008Q4

REPORT INFORMATION
  Report Type: 
  Country: None (occurrence: None)
  Receive Date: 20081124
  Receipt Date: 20081117
  Transmission Date: 20090506
  Serious: Yes (Death, Hospitalization)
  Sender: FDA-Public Use
  Company Number: B0538922A

PATIENT
  Age: 70 Year
  Sex: Male

DRUGS (8)
  1. PAXIL [Suspect]
     Indication: DEPRESSION
     Route: 048
  2. PAXIL [Suspect]
     Route: 048
     Dates: start: 20080822, end: 20080902
  3. PAXIL [Suspect]
     Dosage: 30MG PER DAY
     Route: 048
     Dates: start: 20080903, end: 20080911
  4. PAXIL [Suspect]
     Route: 048
     Dates: start: 20080912, end: 20080916
  5. DECADRON [Concomitant]
     Dosage: .5MG PER DAY
     Route: 065
  6. LANSOPRAZOLE [Concomitant]
     Dosage: 15MG PER DAY
     Route: 065
  7. ADALAT [Concomitant]
     Dosage: 20MG PER DAY
     Route: 048
  8. MAGMITT [Concomitant]
     Dosage: 990MG PER DAY
     Route: 048

REACTIONS (4)
  - CONVULSION [None]
  - DEATH [None]
  - HALLUCINATION, VISUAL [None]
  - INAPPROPRIATE ANTIDIURETIC HORMONE SECRETION [None]
